FAERS Safety Report 10102741 (Version 2)
Quarter: 2014Q2

REPORT INFORMATION
  Report Type: Report from Study
  Country: US (occurrence: US)
  Receive Date: 20140424
  Receipt Date: 20140424
  Transmission Date: 20141212
  Serious: Yes (Hospitalization)
  Sender: FDA-Public Use
  Company Number: US-SA-2013SA105650

PATIENT
  Age: 30 Year
  Sex: Female

DRUGS (2)
  1. AUBAGIO [Suspect]
     Indication: MULTIPLE SCLEROSIS
     Route: 048
     Dates: start: 20130819, end: 20140317
  2. ANTIINFLAMMATORY/ANTIRHEUMATIC PRODUCTS [Concomitant]

REACTIONS (2)
  - Multiple sclerosis relapse [Unknown]
  - Central nervous system lesion [Unknown]
